FAERS Safety Report 4370329-4 (Version None)
Quarter: 2004Q2

REPORT INFORMATION
  Report Type: 
  Country: None (occurrence: None)
  Receive Date: 20040603
  Receipt Date: 20040316
  Transmission Date: 20050107
  Serious: Yes (Other)
  Sender: FDA-Public Use
  Company Number: US-BRISTOL-MYERS SQUIBB COMPANY-12534764

PATIENT
  Age: 17 Year
  Sex: Male
  Weight: 159 kg

DRUGS (6)
  1. ABILIFY [Suspect]
     Indication: AUTISM
     Route: 048
     Dates: start: 20040121, end: 20040209
  2. ABILIFY [Suspect]
     Indication: AGGRESSION
     Route: 048
     Dates: start: 20040121, end: 20040209
  3. ZYPREXA [Concomitant]
     Dosage: CURRENTLY BEING TAPERED OFF.
     Route: 048
  4. CARBATROL [Concomitant]
  5. LORAZEPAM [Concomitant]
  6. LASIX [Concomitant]

REACTIONS (2)
  - ABNORMAL BEHAVIOUR [None]
  - CONVULSION [None]
